FAERS Safety Report 7808576-9 (Version None)
Quarter: 2011Q4

REPORT INFORMATION
  Report Type: 
  Country: None (occurrence: None)
  Receive Date: 20111012
  Receipt Date: 20111010
  Transmission Date: 20120403
  Serious: No
  Sender: FDA-Public Use
  Company Number: US-PFIZER INC-2011242512

PATIENT
  Sex: Male
  Weight: 81.63 kg

DRUGS (4)
  1. SERTRALINE HYDROCHLORIDE [Suspect]
     Indication: PSYCHOMOTOR HYPERACTIVITY
     Dosage: 25 MG, DAILY
     Dates: start: 20090101
  2. SERTRALINE HYDROCHLORIDE [Suspect]
     Dosage: 25 MG, UNK
     Dates: start: 20111001, end: 20111001
  3. SERTRALINE HYDROCHLORIDE [Suspect]
     Indication: AFFECTIVE DISORDER
     Dosage: 100 MG, UNK
     Dates: start: 20111001, end: 20111001
  4. SERTRALINE HYDROCHLORIDE [Suspect]
     Dosage: 25 MG, UNK
     Dates: start: 20111001

REACTIONS (6)
  - INCORRECT DOSE ADMINISTERED [None]
  - DECREASED APPETITE [None]
  - INSOMNIA [None]
  - INAPPROPRIATE SCHEDULE OF DRUG ADMINISTRATION [None]
  - NAUSEA [None]
  - VOMITING [None]
